FAERS Safety Report 19929624 (Version 1)
Quarter: 2021Q4

REPORT INFORMATION
  Report Type: Spontaneous
  Country: US (occurrence: US)
  Receive Date: 20211007
  Receipt Date: 20211007
  Transmission Date: 20220303
  Serious: No
  Sender: FDA-Public Use
  Company Number: US-PFIZER INC-202101099323

PATIENT
  Age: 79 Year
  Sex: Male
  Weight: 72.57 kg

DRUGS (6)
  1. LATANOPROST [Suspect]
     Active Substance: LATANOPROST
     Indication: Glaucoma
     Dosage: 1 DROP, 1X/DAY (ONE DROP IN EACH EYE EVERY NIGHT)
     Dates: start: 2014
  2. LATANOPROST [Suspect]
     Active Substance: LATANOPROST
     Dosage: 1 DROP, 1X/DAY (ONE DROP IN EACH EYE EVERY NIGHT)
  3. LATANOPROST [Suspect]
     Active Substance: LATANOPROST
     Dosage: 1 DROP, 1X/DAY (ONE DROP IN EACH EYE EVERY NIGHT)
  4. LATANOPROST [Suspect]
     Active Substance: LATANOPROST
     Dosage: 1 DROP, 1X/DAY (ONE DROP IN EACH EYE EVERY NIGHT)
  5. LATANOPROST [Suspect]
     Active Substance: LATANOPROST
     Dosage: 1 DROP, 1X/DAY (ONE DROP IN EACH EYE EVERY NIGHT)
  6. LATANOPROST [Suspect]
     Active Substance: LATANOPROST
     Dosage: 1 DROP, 1X/DAY (ONE DROP IN EACH EYE EVERY NIGHT)

REACTIONS (2)
  - Visual acuity reduced [Not Recovered/Not Resolved]
  - Dry eye [Recovering/Resolving]
